FAERS Safety Report 24151665 (Version 1)
Quarter: 2024Q3

REPORT INFORMATION
  Report Type: Spontaneous
  Country: US (occurrence: US)
  Receive Date: 20240730
  Receipt Date: 20240730
  Transmission Date: 20241016
  Serious: No
  Sender: PERRIGO
  Company Number: US-PERRIGO-24US003389

PATIENT
  Age: 77 Year
  Sex: Female
  Weight: 50.794 kg

DRUGS (6)
  1. LORATADINE [Suspect]
     Active Substance: LORATADINE
     Indication: Seasonal allergy
     Dosage: 10 MG, QD
     Route: 048
     Dates: start: 202402, end: 20240403
  2. LORATADINE [Suspect]
     Active Substance: LORATADINE
     Indication: Rhinorrhoea
  3. LORATADINE [Suspect]
     Active Substance: LORATADINE
     Indication: Lacrimation increased
  4. LORATADINE [Suspect]
     Active Substance: LORATADINE
     Indication: Sneezing
  5. ROSUVASTATIN [Concomitant]
     Active Substance: ROSUVASTATIN\ROSUVASTATIN CALCIUM
     Indication: Blood cholesterol increased
     Dosage: UNKNOWN, UNKNOWN
     Route: 065
     Dates: start: 202304
  6. FLUTICASONE PROPIONATE [Concomitant]
     Active Substance: FLUTICASONE PROPIONATE
     Indication: Seasonal allergy
     Dosage: UNKNOWN, UNKNOWN
     Route: 045
     Dates: start: 202304

REACTIONS (1)
  - Drug ineffective [Unknown]

NARRATIVE: CASE EVENT DATE: 20240201
